FAERS Safety Report 8590589-3 (Version None)
Quarter: 2012Q3

REPORT INFORMATION
  Report Type: 
  Country: None (occurrence: None)
  Receive Date: 20120813
  Receipt Date: 20120809
  Transmission Date: 20120928
  Serious: Yes (Other)
  Sender: FDA-Public Use
  Company Number: US-VERTEX PHARMACEUTICALS INC.-AE-2012-006939

PATIENT
  Sex: Male

DRUGS (4)
  1. PEGASYS [Concomitant]
     Indication: HEPATITIS C
     Route: 058
     Dates: start: 20120425
  2. NEUPOGEN [Concomitant]
  3. INCIVEK [Suspect]
     Indication: HEPATITIS C
     Dates: start: 20120425, end: 20120718
  4. COPEGUS [Concomitant]
     Indication: HEPATITIS C
     Dates: start: 20120425

REACTIONS (3)
  - HAEMORRHOIDS [None]
  - RECTAL HAEMORRHAGE [None]
  - WHITE BLOOD CELL COUNT DECREASED [None]
